FAERS Safety Report 4441921-3 (Version None)
Quarter: 2004Q3

REPORT INFORMATION
  Report Type: 
  Country: None (occurrence: None)
  Receive Date: 20040901
  Receipt Date: 20040819
  Transmission Date: 20050211
  Serious: Yes (Disabling)
  Sender: FDA-Public Use
  Company Number: 2004229878BR

PATIENT
  Sex: Female

DRUGS (1)
  1. DETRUSITOL LA (TOLTERODINE) CAPSULE, PROLONGED RELEASE, 4MG [Suspect]
     Indication: MICTURITION DISORDER
     Dosage: 4 MG, ORAL
     Route: 048

REACTIONS (1)
  - AMNESIA [None]
